FAERS Safety Report 6418135-0 (Version None)
Quarter: 2009Q4

REPORT INFORMATION
  Report Type: 
  Country: None (occurrence: None)
  Receive Date: 20091026
  Receipt Date: 20091013
  Transmission Date: 20100525
  Serious: Yes (Life-Threatening, Hospitalization)
  Sender: FDA-Public Use
  Company Number: ADR38212009

PATIENT
  Age: 59 Year
  Sex: Male

DRUGS (8)
  1. SIMVASTATIN [Suspect]
     Indication: HYPERCHOLESTEROLAEMIA
     Dosage: 40 MG DAILY, ORAL USE
     Route: 048
     Dates: start: 20050711
  2. ASPIRIN [Concomitant]
  3. BECLOMETHASONE DIPROPIONATE [Concomitant]
  4. CLOPIDOGREL [Concomitant]
  5. DOXAZOSIN MESYLATE [Concomitant]
  6. NITROGLYCERIN [Concomitant]
  7. NICORANDIL [Concomitant]
  8. RAMIPRIL [Concomitant]

REACTIONS (6)
  - ACUTE MYOCARDIAL INFARCTION [None]
  - ANGIOPLASTY [None]
  - ARTERIAL STENT INSERTION [None]
  - CARDIOVASCULAR DISORDER [None]
  - CONJUNCTIVITIS ALLERGIC [None]
  - DEPRESSION [None]
